FAERS Safety Report 24574122 (Version 1)
Quarter: 2024Q4

REPORT INFORMATION
  Report Type: Spontaneous
  Country: BE (occurrence: BE)
  Receive Date: 20241104
  Receipt Date: 20241104
  Transmission Date: 20250114
  Serious: Yes (Other)
  Sender: BOEHRINGER INGELHEIM
  Company Number: BE-BoehringerIngelheim-2024-BI-059679

PATIENT
  Age: 45 Year
  Sex: Male
  Weight: 88 kg

DRUGS (1)
  1. PRAMIPEXOLE [Suspect]
     Active Substance: PRAMIPEXOLE\PRAMIPEXOLE DIHYDROCHLORIDE
     Indication: Parkinson^s disease

REACTIONS (37)
  - Suicide attempt [Unknown]
  - Seizure [Unknown]
  - Aggression [Recovered/Resolved]
  - Weight increased [Unknown]
  - Constipation [Unknown]
  - Dyspepsia [Unknown]
  - Sensitivity to weather change [Unknown]
  - Psychomotor hyperactivity [Unknown]
  - Gambling [Unknown]
  - Hyperhidrosis [Unknown]
  - Neurosis [Unknown]
  - Anger [Unknown]
  - Anger [Unknown]
  - Judgement impaired [Unknown]
  - Sleep attacks [Unknown]
  - Schizophrenia [Unknown]
  - Personality disorder [Unknown]
  - Psychiatric symptom [Unknown]
  - Feeling of body temperature change [Unknown]
  - Cough [Recovered/Resolved]
  - Vomiting [Unknown]
  - Anger [Unknown]
  - Fatigue [Unknown]
  - Abnormal behaviour [Unknown]
  - Weight decreased [Unknown]
  - Peripheral swelling [Recovered/Resolved]
  - Peripheral swelling [Unknown]
  - Weight increased [Recovered/Resolved]
  - Dyspepsia [Unknown]
  - Vomiting [Unknown]
  - Feeling guilty [Unknown]
  - Loss of personal independence in daily activities [Unknown]
  - Fatigue [Unknown]
  - Insomnia [Unknown]
  - Stress [Unknown]
  - Hypersomnia [Unknown]
  - Depression [Unknown]
